FAERS Safety Report 9392377 (Version 1)
Quarter: 2013Q3

REPORT INFORMATION
  Report Type: Spontaneous
  Country: US (occurrence: None)
  Receive Date: 20130708
  Receipt Date: 20130708
  Transmission Date: 20140515
  Serious: Yes (Life-Threatening, Hospitalization, Other)
  Sender: FDA-Public Use
  Company Number: None

PATIENT
  Age: 34 Year
  Sex: Female
  Weight: 62.6 kg

DRUGS (3)
  1. SUDAFED PE [Suspect]
     Indication: RHINORRHOEA
     Dosage: ONE PILL
     Route: 048
     Dates: start: 20130704, end: 20130704
  2. SUDAFED PE [Suspect]
     Indication: EAR PAIN
     Dosage: ONE PILL
     Route: 048
     Dates: start: 20130704, end: 20130704
  3. SUDAFED PE [Suspect]
     Indication: SINUS HEADACHE
     Dosage: ONE PILL
     Route: 048
     Dates: start: 20130704, end: 20130704

REACTIONS (25)
  - Headache [None]
  - Neck pain [None]
  - Local swelling [None]
  - Heart rate increased [None]
  - Dyspnoea [None]
  - Vision blurred [None]
  - Blood pressure increased [None]
  - Heart rate decreased [None]
  - Oxygen saturation decreased [None]
  - Lethargy [None]
  - Fatigue [None]
  - Blood pressure diastolic decreased [None]
  - White blood cell count increased [None]
  - Muscular weakness [None]
  - Muscular weakness [None]
  - Muscular weakness [None]
  - Grip strength decreased [None]
  - Sensation of heaviness [None]
  - Cough [None]
  - Eating disorder [None]
  - Dysphagia [None]
  - Post procedural complication [None]
  - Post lumbar puncture syndrome [None]
  - Dizziness [None]
  - Spinal disorder [None]
